FAERS Safety Report 7793321-6 (Version None)
Quarter: 2011Q4

REPORT INFORMATION
  Report Type: 
  Country: None (occurrence: None)
  Receive Date: 20111003
  Receipt Date: 20110926
  Transmission Date: 20120403
  Serious: Yes (Other)
  Sender: FDA-Public Use
  Company Number: JP-JNJFOC-20100110330

PATIENT
  Sex: Female
  Weight: 54 kg

DRUGS (19)
  1. DOXORUBICIN HCL [Suspect]
     Route: 042
     Dates: start: 20090611, end: 20090611
  2. SEROTONE [Concomitant]
     Route: 042
     Dates: start: 20090709, end: 20090709
  3. HEPARIN [Concomitant]
     Indication: PALMAR-PLANTAR ERYTHRODYSAESTHESIA SYNDROME
     Route: 061
     Dates: start: 20090806, end: 20091020
  4. SEROTONE [Concomitant]
     Route: 042
     Dates: start: 20090611, end: 20090611
  5. BETAMETHASONE [Concomitant]
     Indication: PALMAR-PLANTAR ERYTHRODYSAESTHESIA SYNDROME
     Route: 061
     Dates: start: 20090801, end: 20091020
  6. DOXORUBICIN HCL [Suspect]
     Route: 042
     Dates: start: 20090806, end: 20090806
  7. DECADRON [Concomitant]
     Indication: PROPHYLAXIS
     Route: 048
     Dates: start: 20090902, end: 20090907
  8. SEROTONE [Concomitant]
     Route: 042
     Dates: start: 20091001, end: 20091001
  9. DEXALTIN [Concomitant]
     Indication: STOMATITIS
     Route: 049
     Dates: start: 20090820, end: 20091020
  10. SEROTONE [Concomitant]
     Route: 048
     Dates: start: 20090612, end: 20090614
  11. DOXORUBICIN HCL [Suspect]
     Route: 042
     Dates: start: 20090903, end: 20090903
  12. DOXORUBICIN HCL [Suspect]
     Route: 042
     Dates: start: 20090709, end: 20090709
  13. LOXONIN [Concomitant]
     Indication: PRODUCT USED FOR UNKNOWN INDICATION
     Route: 048
     Dates: start: 20090820, end: 20091020
  14. MECOBALAMIN [Concomitant]
     Indication: PRODUCT USED FOR UNKNOWN INDICATION
     Route: 048
     Dates: start: 20090709, end: 20090807
  15. DOXORUBICIN HCL [Suspect]
     Indication: OVARIAN CANCER RECURRENT
     Route: 042
     Dates: start: 20091001, end: 20091001
  16. SEROTONE [Concomitant]
     Indication: PROPHYLAXIS
     Route: 042
     Dates: start: 20090806, end: 20090806
  17. SEROTONE [Concomitant]
     Route: 042
     Dates: start: 20090903, end: 20090903
  18. RESTAMIN [Concomitant]
     Indication: PALMAR-PLANTAR ERYTHRODYSAESTHESIA SYNDROME
     Route: 061
     Dates: start: 20090903, end: 20091020
  19. MUCOSTA [Concomitant]
     Indication: PROPHYLAXIS
     Route: 048
     Dates: start: 20090820, end: 20091020

REACTIONS (1)
  - INTERSTITIAL LUNG DISEASE [None]
